FAERS Safety Report 8190016-4 (Version None)
Quarter: 2012Q1

REPORT INFORMATION
  Report Type: 
  Country: None (occurrence: None)
  Receive Date: 20120305
  Receipt Date: 20120221
  Transmission Date: 20120608
  Serious: Yes (Life-Threatening, Other)
  Sender: FDA-Public Use
  Company Number: 54973 AE # 773

PATIENT
  Age: 7 Month
  Sex: Male

DRUGS (1)
  1. HYLAND'S BABY TEETHING TABLETS [Suspect]
     Indication: TEETHING

REACTIONS (1)
  - CONVULSION [None]
